FAERS Safety Report 6095096-8 (Version None)
Quarter: 2009Q1

REPORT INFORMATION
  Report Type: 
  Country: None (occurrence: None)
  Receive Date: 20090227
  Receipt Date: 20080118
  Transmission Date: 20090719
  Serious: No
  Sender: FDA-Public Use
  Company Number: A0704114A

PATIENT
  Age: 81 Year
  Sex: Female

DRUGS (4)
  1. LAMICTAL [Suspect]
     Indication: BIPOLAR DISORDER
     Dosage: 100MG UNKNOWN
     Route: 048
     Dates: start: 20070701, end: 20080101
  2. CELEXA [Concomitant]
  3. XANAX [Concomitant]
  4. ABILIFY [Concomitant]

REACTIONS (1)
  - RASH [None]
